FAERS Safety Report 7493352-X (Version None)
Quarter: 2011Q2

REPORT INFORMATION
  Report Type: 
  Country: None (occurrence: None)
  Receive Date: 20110519
  Receipt Date: 20110519
  Transmission Date: 20111010
  Serious: Yes (Other)
  Sender: FDA-Public Use
  Company Number: None

PATIENT
  Sex: Female
  Weight: 88.905 kg

DRUGS (1)
  1. PHENYLEPHRINE HCL [Suspect]
     Indication: BLOOD PRESSURE ABNORMAL
     Dosage: 320 MCG/ML IV
     Route: 042

REACTIONS (7)
  - DRUG INTERACTION [None]
  - INJECTION SITE EXTRAVASATION [None]
  - INCORRECT DOSE ADMINISTERED [None]
  - DRUG EFFECT PROLONGED [None]
  - WRONG TECHNIQUE IN DRUG USAGE PROCESS [None]
  - DRUG HYPERSENSITIVITY [None]
  - TOXICITY TO VARIOUS AGENTS [None]
